FAERS Safety Report 25818741 (Version 4)
Quarter: 2025Q4

REPORT INFORMATION
  Report Type: Report from Study
  Country: US (occurrence: US)
  Receive Date: 20250918
  Receipt Date: 20251205
  Transmission Date: 20260117
  Serious: No
  Sender: MALLINCKRODT
  Company Number: US-MALLINCKRODT-MNK202505774

PATIENT
  Age: 47 Year
  Sex: Male
  Weight: 270 kg

DRUGS (3)
  1. CORTICOTROPIN [Suspect]
     Active Substance: CORTICOTROPIN
     Indication: Sarcoidosis
     Dosage: 40 UNITS
     Route: 058
     Dates: start: 20250901, end: 202511
  2. METHOTREXATE [Suspect]
     Active Substance: METHOTREXATE
     Indication: Product used for unknown indication
     Dosage: UNKNOWN
     Dates: start: 20250901, end: 202509
  3. METHOTREXATE [Suspect]
     Active Substance: METHOTREXATE
     Dosage: UNKNOWN (DECREASED)
     Dates: start: 202509

REACTIONS (7)
  - Decreased appetite [Recovered/Resolved]
  - Sinus disorder [Unknown]
  - Tremor [Recovered/Resolved]
  - Hypersomnia [Recovered/Resolved]
  - Hypertension [Recovered/Resolved]
  - Fatigue [Recovered/Resolved]
  - Injection site discharge [Unknown]

NARRATIVE: CASE EVENT DATE: 20250901
